FAERS Safety Report 19400421 (Version 2)
Quarter: 2022Q3

REPORT INFORMATION
  Report Type: Report from Study
  Country: US (occurrence: US)
  Receive Date: 20210610
  Receipt Date: 20220809
  Transmission Date: 20221027
  Serious: No
  Sender: FDA-Public Use
  Company Number: US-KYOWAKIRIN-2021BKK009381

PATIENT

DRUGS (3)
  1. CRYSVITA [Suspect]
     Active Substance: BUROSUMAB-TWZA
     Indication: Hereditary hypophosphataemic rickets
     Dosage: 10 MG EVERY 14 DAYS
     Route: 058
     Dates: start: 20190906
  2. CRYSVITA [Suspect]
     Active Substance: BUROSUMAB-TWZA
     Dosage: 11 MG (0.55 ML) EVERY 14 DAYS
     Route: 058
  3. CRYSVITA [Suspect]
     Active Substance: BUROSUMAB-TWZA
     Indication: Hereditary hypophosphataemic rickets
     Dosage: 12 MG (0.6 ML) EVERY 14 DAYS
     Route: 058

REACTIONS (3)
  - Weight increased [Unknown]
  - Arthralgia [Unknown]
  - Incorrect dose administered [Unknown]
